FAERS Safety Report 8996967 (Version 1)
Quarter: 2012Q4

REPORT INFORMATION
  Report Type: Spontaneous
  Country: US (occurrence: None)
  Receive Date: 20121221
  Receipt Date: 20121221
  Transmission Date: 20130627
  Serious: Yes (Other)
  Sender: FDA-Public Use
  Company Number: AUR-APL-2012-05454

PATIENT
  Age: 35 Year
  Sex: Female
  Weight: 61.22 kg

DRUGS (1)
  1. VENLAFAXINE [Suspect]
     Indication: DEPRESSION
     Route: 048
     Dates: start: 20121206, end: 20121207

REACTIONS (9)
  - Strabismus [None]
  - Diplopia [None]
  - Asthenia [None]
  - Dysstasia [None]
  - Fatigue [None]
  - Hypersomnia [None]
  - Dizziness [None]
  - Activities of daily living impaired [None]
  - Feeling abnormal [None]
